FAERS Safety Report 17376252 (Version 1)
Quarter: 2020Q1

REPORT INFORMATION
  Report Type: Spontaneous
  Country: US (occurrence: US)
  Receive Date: 20200122
  Receipt Date: 20200122
  Transmission Date: 20200409
  Serious: Yes (Other)
  Sender: FDA-Public Use
  Company Number: None

PATIENT
  Age: 39 Year
  Sex: Female
  Weight: 56.2 kg

DRUGS (1)
  1. LAMOTRIGINE 100MG [Suspect]
     Active Substance: LAMOTRIGINE
     Route: 048
     Dates: start: 20120614, end: 20121013

REACTIONS (1)
  - Seizure [None]

NARRATIVE: CASE EVENT DATE: 20120614
